FAERS Safety Report 23352362 (Version 4)
Quarter: 2024Q2

REPORT INFORMATION
  Report Type: Spontaneous
  Country: CN (occurrence: CN)
  Receive Date: 20231229
  Receipt Date: 20240506
  Transmission Date: 20240716
  Serious: Yes (Hospitalization, Other)
  Sender: FDA-Public Use
  Company Number: CN-009507513-2312CHN009749

PATIENT
  Age: 66 Year
  Sex: Female
  Weight: 52 kg

DRUGS (5)
  1. KEYTRUDA [Suspect]
     Active Substance: PEMBROLIZUMAB
     Indication: Non-small cell lung cancer recurrent
     Dosage: 200 MG, Q3W; FOR 3 CYCLES
     Route: 041
     Dates: start: 20231013, end: 20231124
  2. KEYTRUDA [Suspect]
     Active Substance: PEMBROLIZUMAB
     Indication: Non-small cell lung cancer metastatic
  3. EMPAGLIFLOZIN [Concomitant]
     Active Substance: EMPAGLIFLOZIN
     Indication: Diabetes mellitus
     Dosage: 10MG/TIME, QD
     Route: 048
     Dates: start: 20231011, end: 20231208
  4. INSULIN NOS [Concomitant]
     Active Substance: INSULIN NOS
     Indication: Diabetes mellitus
     Dosage: 14U/BEFORE DINNER, QD
     Route: 058
     Dates: start: 20231025, end: 20231201
  5. METFORMIN HYDROCHLORIDE [Concomitant]
     Active Substance: METFORMIN HYDROCHLORIDE
     Indication: Diabetes mellitus
     Dosage: 1G/TIME, BID
     Route: 048
     Dates: start: 2014, end: 20231208

REACTIONS (10)
  - Intracranial hypotension [Recovered/Resolved]
  - Carotid arteriosclerosis [Unknown]
  - Degenerative aortic valve disease [Unknown]
  - Aortic arteriosclerosis [Unknown]
  - Pericardial effusion [Unknown]
  - Carotid intima-media thickness increased [Unknown]
  - Mean cell haemoglobin concentration abnormal [Unknown]
  - Red cell distribution width abnormal [Unknown]
  - Aspartate aminotransferase abnormal [Unknown]
  - Occult blood positive [Unknown]

NARRATIVE: CASE EVENT DATE: 20231128
